FAERS Safety Report 4659875-3 (Version None)
Quarter: 2005Q2

REPORT INFORMATION
  Report Type: 
  Country: None (occurrence: None)
  Receive Date: 20050502
  Receipt Date: 20041215
  Transmission Date: 20051028
  Serious: Yes (Hospitalization)
  Sender: FDA-Public Use
  Company Number: US103430

PATIENT
  Age: 81 Year
  Sex: Female
  Weight: 54.5 kg

DRUGS (7)
  1. EPOGEN [Suspect]
     Indication: DIALYSIS
     Dosage: 20000 IU, 2 IN 1 WEEKS, IV
     Route: 042
  2. WARFARIN SODIUM [Concomitant]
  3. NIFEDIPINE [Concomitant]
  4. DIGOXIN [Concomitant]
  5. PHOSLO [Concomitant]
  6. NEPHRO-VITE [Concomitant]
  7. GLIPIZIDE [Concomitant]

REACTIONS (3)
  - BONE MARROW DEPRESSION [None]
  - CHEST PAIN [None]
  - THERAPEUTIC RESPONSE DECREASED [None]
